FAERS Safety Report 6754257-2 (Version None)
Quarter: 2010Q2

REPORT INFORMATION
  Report Type: 
  Country: None (occurrence: None)
  Receive Date: 20100603
  Receipt Date: 20100525
  Transmission Date: 20101027
  Serious: Yes (Other)
  Sender: FDA-Public Use
  Company Number: JP-MERCK-1005USA04466

PATIENT
  Age: 84 Year
  Sex: Female

DRUGS (5)
  1. JANUVIA [Suspect]
     Indication: DIABETES MELLITUS
     Route: 048
     Dates: start: 20091216, end: 20100517
  2. ALLOZYM [Concomitant]
     Dosage: DAILY DOSAGE UNKNWON
     Route: 048
  3. AMLODIPINE [Concomitant]
     Indication: HYPERTENSION
     Dosage: DAILY DOSAGE UNKNOWN
     Route: 048
  4. CALCIUM POLYSTYRENE SULFONATE [Concomitant]
     Indication: BLOOD POTASSIUM INCREASED
     Dosage: DAILY DOSAGE UNKNOWN
     Route: 048
  5. MEIACT [Concomitant]
     Indication: SKIN INFECTION
     Route: 048
     Dates: start: 20100512, end: 20100517

REACTIONS (1)
  - HYPOGLYCAEMIA [None]
